FAERS Safety Report 9000310 (Version 1)
Quarter: 2013Q1

REPORT INFORMATION
  Report Type: Spontaneous
  Country: US (occurrence: None)
  Receive Date: 20130102
  Receipt Date: 20130102
  Transmission Date: 20140127
  Serious: Yes (Other)
  Sender: FDA-Public Use
  Company Number: None

PATIENT
  Age: 53 Year
  Sex: Male
  Weight: 114.2 kg

DRUGS (2)
  1. BOCEPREVIR [Suspect]
     Indication: HEPATITIS C
     Route: 048
     Dates: start: 20120518, end: 20121104
  2. RIBAVIRIN [Suspect]
     Indication: HEPATITIS C
     Route: 048
     Dates: start: 20120419, end: 20121104

REACTIONS (1)
  - Anaemia [None]
